FAERS Safety Report 11523580 (Version 1)
Quarter: 2015Q3

REPORT INFORMATION
  Report Type: Spontaneous
  Country: US (occurrence: US)
  Receive Date: 20150918
  Receipt Date: 20150918
  Transmission Date: 20151125
  Serious: No
  Sender: FDA-Public Use
  Company Number: US-ROCHE-745101

PATIENT
  Sex: Female

DRUGS (2)
  1. COPEGUS [Suspect]
     Active Substance: RIBAVIRIN
     Indication: HEPATITIS
     Route: 065
  2. PEGASYS [Suspect]
     Active Substance: PEGINTERFERON ALFA-2A
     Indication: HEPATITIS
     Dosage: FORM:PRE-FILLED SYRINGE
     Route: 065

REACTIONS (4)
  - Hepatic enzyme abnormal [Not Recovered/Not Resolved]
  - Enteritis infectious [Unknown]
  - Blood potassium decreased [Unknown]
  - Uterine infection [Unknown]
